FAERS Safety Report 6139584-4 (Version None)
Quarter: 2009Q1

REPORT INFORMATION
  Report Type: 
  Country: None (occurrence: None)
  Receive Date: 20090330
  Receipt Date: 20080508
  Transmission Date: 20090719
  Serious: Yes (Other)
  Sender: FDA-Public Use
  Company Number: 171271USA

PATIENT
  Age: 42 Year
  Sex: Female

DRUGS (2)
  1. TAMOXIFEN CITRATE [Suspect]
     Indication: BREAST CANCER
     Dates: start: 20040101, end: 20060101
  2. LETROZOLE [Suspect]
     Indication: BREAST CANCER
     Dates: start: 20060401

REACTIONS (1)
  - CEREBROVASCULAR ACCIDENT [None]
